FAERS Safety Report 5398376-4 (Version None)
Quarter: 2007Q3

REPORT INFORMATION
  Report Type: 
  Country: None (occurrence: None)
  Receive Date: 20070726
  Receipt Date: 20070507
  Transmission Date: 20080115
  Serious: No
  Sender: FDA-Public Use
  Company Number: US-AMGEN-KDL223769

PATIENT
  Age: 77 Year
  Sex: Female
  Weight: 63.6 kg

DRUGS (7)
  1. PROCRIT [Suspect]
     Indication: ANAEMIA
     Dates: start: 20070201
  2. LANTUS [Concomitant]
  3. LISINOPRIL [Concomitant]
     Route: 048
  4. NORVASC [Concomitant]
     Route: 048
  5. PLAVIX [Concomitant]
  6. HUMALOG [Concomitant]
  7. FUROSEMIDE [Concomitant]

REACTIONS (2)
  - OEDEMA PERIPHERAL [None]
  - PAIN IN EXTREMITY [None]
